FAERS Safety Report 8363293-4 (Version None)
Quarter: 2012Q2

REPORT INFORMATION
  Report Type: 
  Country: None (occurrence: None)
  Receive Date: 20120516
  Receipt Date: 20120509
  Transmission Date: 20120825
  Serious: Yes (Hospitalization)
  Sender: FDA-Public Use
  Company Number: AU-UCBSA-054941

PATIENT
  Age: 16 Year
  Sex: Female
  Weight: 50 kg

DRUGS (10)
  1. VIMPAT [Suspect]
     Indication: STATUS EPILEPTICUS
     Dosage: DOWNTITRATED
     Route: 042
  2. VIMPAT [Suspect]
     Dosage: INITIAL DOSE : 100 MG
     Route: 042
  3. VALPROATE SODIUM [Concomitant]
     Indication: STATUS EPILEPTICUS
     Route: 042
  4. VIMPAT [Suspect]
     Indication: GRAND MAL CONVULSION
     Dosage: DOWNTITRATED
     Route: 042
  5. VIMPAT [Suspect]
     Dosage: INITIAL DOSE : 100 MG
     Route: 042
  6. LEVETIRACETAM [Concomitant]
     Indication: STATUS EPILEPTICUS
     Route: 042
  7. TOPIRAMATE [Concomitant]
     Indication: STATUS EPILEPTICUS
     Route: 048
  8. MIDAZOLAM [Concomitant]
     Indication: STATUS EPILEPTICUS
     Route: 042
  9. METHYLPREDNISOLONE [Concomitant]
     Indication: STATUS EPILEPTICUS
     Route: 042
  10. CLONAZEPAM [Concomitant]
     Indication: STATUS EPILEPTICUS
     Route: 042

REACTIONS (1)
  - CHOREA [None]
